FAERS Safety Report 8151646-9 (Version None)
Quarter: 2012Q1

REPORT INFORMATION
  Report Type: 
  Country: None (occurrence: None)
  Receive Date: 20120220
  Receipt Date: 20120216
  Transmission Date: 20120608
  Serious: Yes (Hospitalization)
  Sender: FDA-Public Use
  Company Number: JP-ROCHE-687153

PATIENT
  Sex: Female

DRUGS (14)
  1. ACTEMRA [Suspect]
     Indication: RHEUMATOID ARTHRITIS
     Route: 041
     Dates: start: 20090724, end: 20090724
  2. ACTEMRA [Suspect]
     Route: 041
     Dates: start: 20090821, end: 20090821
  3. METHOTREXATE [Concomitant]
     Route: 048
  4. FOLIC ACID [Concomitant]
     Dosage: DOSE FORM: PERORAL AGENT
     Route: 048
  5. PREDNISOLONE [Concomitant]
     Route: 048
  6. ACTEMRA [Suspect]
     Route: 041
     Dates: start: 20100115, end: 20100115
  7. METHOTREXATE [Concomitant]
     Route: 048
     Dates: start: 20090610, end: 20090712
  8. LANSOPRAZOLE [Concomitant]
     Route: 048
  9. ONEALFA [Concomitant]
     Route: 048
  10. ASPARA-CA [Concomitant]
     Route: 048
  11. ACTEMRA [Suspect]
     Route: 041
     Dates: start: 20090925, end: 20090925
  12. ACTEMRA [Suspect]
     Route: 041
     Dates: start: 20091023, end: 20091023
  13. ACTEMRA [Suspect]
     Route: 041
  14. ETODOLAC [Concomitant]
     Route: 048

REACTIONS (1)
  - SUBCUTANEOUS ABSCESS [None]
